FAERS Safety Report 25358278 (Version 1)
Quarter: 2025Q2

REPORT INFORMATION
  Report Type: Spontaneous
  Country: UA (occurrence: UA)
  Receive Date: 20250526
  Receipt Date: 20250526
  Transmission Date: 20250717
  Serious: Yes (Death, Other)
  Sender: Steriscience PTE
  Company Number: UA-MLMSERVICE-20250505-PI498347-00089-1

PATIENT
  Age: 4 Year
  Sex: Female

DRUGS (21)
  1. MEROPENEM [Suspect]
     Active Substance: MEROPENEM
     Indication: Endotoxaemia
     Route: 065
  2. MEROPENEM [Suspect]
     Active Substance: MEROPENEM
     Indication: Sepsis
  3. DOBUTAMINE [Suspect]
     Active Substance: DOBUTAMINE HYDROCHLORIDE
     Indication: Multiple organ dysfunction syndrome
     Route: 065
  4. DOBUTAMINE [Suspect]
     Active Substance: DOBUTAMINE HYDROCHLORIDE
     Indication: Haemodynamic instability
  5. NOREPINEPHRINE [Suspect]
     Active Substance: NOREPINEPHRINE
     Indication: Multiple organ dysfunction syndrome
     Route: 065
  6. NOREPINEPHRINE [Suspect]
     Active Substance: NOREPINEPHRINE
     Indication: Haemodynamic instability
  7. DOPAMINE [Suspect]
     Active Substance: DOPAMINE HYDROCHLORIDE
     Indication: Multiple organ dysfunction syndrome
     Route: 065
  8. DOPAMINE [Suspect]
     Active Substance: DOPAMINE HYDROCHLORIDE
     Indication: Haemodynamic instability
  9. MORPHINE [Suspect]
     Active Substance: MORPHINE
     Indication: Multiple organ dysfunction syndrome
     Route: 065
  10. MORPHINE [Suspect]
     Active Substance: MORPHINE
     Indication: Haemodynamic instability
  11. LEVOSIMENDAN [Suspect]
     Active Substance: LEVOSIMENDAN
     Indication: Multiple organ dysfunction syndrome
     Route: 065
  12. LEVOSIMENDAN [Suspect]
     Active Substance: LEVOSIMENDAN
     Indication: Haemodynamic instability
  13. HYDROCORTISONE [Suspect]
     Active Substance: HYDROCORTISONE
     Indication: Multiple organ dysfunction syndrome
     Route: 065
  14. HYDROCORTISONE [Suspect]
     Active Substance: HYDROCORTISONE
     Indication: Haemodynamic instability
  15. DEXAMETHASONE [Suspect]
     Active Substance: DEXAMETHASONE
     Indication: Multiple organ dysfunction syndrome
     Route: 065
  16. DEXAMETHASONE [Suspect]
     Active Substance: DEXAMETHASONE
     Indication: Haemodynamic instability
  17. CHLOROPYRAMINE [Suspect]
     Active Substance: CHLOROPYRAMINE
     Indication: Multiple organ dysfunction syndrome
     Route: 065
  18. CHLOROPYRAMINE [Suspect]
     Active Substance: CHLOROPYRAMINE
     Indication: Haemodynamic instability
  19. DIAZEPAM [Suspect]
     Active Substance: DIAZEPAM
     Indication: Multiple organ dysfunction syndrome
     Route: 065
  20. DIAZEPAM [Suspect]
     Active Substance: DIAZEPAM
     Indication: Haemodynamic instability
  21. Ceftriaxone/lidocaine [Concomitant]
     Indication: Evidence based treatment

REACTIONS (1)
  - Drug ineffective [Fatal]
